FAERS Safety Report 8769657 (Version 1)
Quarter: 2012Q4

REPORT INFORMATION
  Report Type: 
  Country: US (occurrence: US)
  Receive Date: 20120905
  Receipt Date: 20120905
  Transmission Date: 20130627
  Serious: No
  Sender: FDA-Public Use
  Company Number: US-009507513-1208USA009373

PATIENT

DRUGS (2)
  1. PROVENTIL [Suspect]
     Indication: COUGH
     Dosage: 2 DF, tid
     Route: 055
     Dates: start: 20120706, end: 20120709
  2. PROVENTIL [Suspect]
     Indication: WHEEZING
     Dosage: 2 DF, prn
     Route: 055

REACTIONS (3)
  - Drug dose omission [Unknown]
  - Incorrect product storage [Unknown]
  - No adverse event [Unknown]
